FAERS Safety Report 6572663-6 (Version None)
Quarter: 2010Q1

REPORT INFORMATION
  Report Type: 
  Country: None (occurrence: None)
  Receive Date: 20100205
  Receipt Date: 20100121
  Transmission Date: 20100710
  Serious: No
  Sender: FDA-Public Use
  Company Number: IT-BAUSCH-2010BL000482

PATIENT
  Age: 75 Year
  Sex: Female

DRUGS (3)
  1. GENTAMICIN [Suspect]
     Indication: PROPHYLAXIS
     Route: 047
  2. GENTAMICIN [Suspect]
     Indication: OFF LABEL USE
     Route: 047
  3. XALATAN /SWE/ [Concomitant]

REACTIONS (1)
  - RETINAL INFARCTION [None]
